FAERS Safety Report 24845079 (Version 2)
Quarter: 2025Q1

REPORT INFORMATION
  Report Type: Report from Study
  Country: US (occurrence: US)
  Receive Date: 20250115
  Receipt Date: 20250220
  Transmission Date: 20250409
  Serious: Yes (Hospitalization)
  Sender: CSL BEHRING
  Company Number: US-BEH-2025191237

PATIENT
  Age: 4 Year
  Sex: Male
  Weight: 18.9 kg

DRUGS (2)
  1. HIZENTRA [Suspect]
     Active Substance: HUMAN IMMUNOGLOBULIN G
     Indication: Hypogammaglobulinaemia
     Route: 065
  2. HIZENTRA [Suspect]
     Active Substance: HUMAN IMMUNOGLOBULIN G
     Dosage: 4.0 G, BIW(STRENGTH: 2)
     Route: 058

REACTIONS (4)
  - Pyrexia [Not Recovered/Not Resolved]
  - Illness [Not Recovered/Not Resolved]
  - Malaise [Unknown]
  - SARS-CoV-2 test positive [Recovering/Resolving]

NARRATIVE: CASE EVENT DATE: 20250206
